FAERS Safety Report 19941224 (Version 1)
Quarter: 2021Q4

REPORT INFORMATION
  Report Type: Spontaneous
  Country: US (occurrence: US)
  Receive Date: 20211012
  Receipt Date: 20211012
  Transmission Date: 20220303
  Serious: Yes (Other)
  Sender: FDA-Public Use
  Company Number: 2021A760191

PATIENT

DRUGS (1)
  1. FASENRA [Suspect]
     Active Substance: BENRALIZUMAB
     Indication: Respiration abnormal
     Dosage: UNKNOWN DOSE AND FREQUENCY
     Route: 058

REACTIONS (4)
  - Inflammatory carcinoma of the breast [Unknown]
  - Spleen disorder [Unknown]
  - Inflammation [Unknown]
  - Eosinophil count decreased [Unknown]
